FAERS Safety Report 6084271-4 (Version None)
Quarter: 2009Q1

REPORT INFORMATION
  Report Type: 
  Country: None (occurrence: None)
  Receive Date: 20090219
  Receipt Date: 20090215
  Transmission Date: 20090719
  Serious: Yes (Life-Threatening, Hospitalization)
  Sender: FDA-Public Use
  Company Number: PHHY2008US31229

PATIENT
  Sex: Male

DRUGS (4)
  1. EXJADE [Suspect]
     Indication: IRON OVERLOAD
     Dosage: 1500 MG/DAY
     Route: 048
     Dates: start: 20080920, end: 20081016
  2. CYCLOSPORINE [Concomitant]
     Indication: APLASIA PURE RED CELL
     Dosage: 100 MG, BID
     Dates: start: 20070401, end: 20081016
  3. ACYCLOVIR [Concomitant]
     Indication: PROPHYLAXIS
     Dosage: 800 MG DAILY
  4. DACLIZUMAB [Concomitant]
     Indication: APLASIA PURE RED CELL
     Route: 042

REACTIONS (6)
  - AGRANULOCYTOSIS [None]
  - ASPARTATE AMINOTRANSFERASE INCREASED [None]
  - BLOOD CREATININE INCREASED [None]
  - FEBRILE NEUTROPENIA [None]
  - NEUTROPHIL COUNT DECREASED [None]
  - WHITE BLOOD CELL COUNT DECREASED [None]
